FAERS Safety Report 5007641-1 (Version None)
Quarter: 2006Q2

REPORT INFORMATION
  Report Type: 
  Country: None (occurrence: None)
  Receive Date: 20060518
  Receipt Date: 20060517
  Transmission Date: 20061013
  Serious: Yes (Other)
  Sender: FDA-Public Use
  Company Number: 20060009USST

PATIENT
  Age: 33 Year
  Sex: Male

DRUGS (2)
  1. NATULAN (PROCARBAZINE HYDROCHLORIDE) CAPSULES [Suspect]
     Indication: HODGKIN'S DISEASE STAGE IV
     Dates: end: 20060219
  2. BLEOMYCIN [Suspect]
     Indication: HODGKIN'S DISEASE STAGE IV
     Dates: start: 20060220

REACTIONS (1)
  - PNEUMONIA PRIMARY ATYPICAL [None]
